FAERS Safety Report 12681625 (Version 2)
Quarter: 2016Q3

REPORT INFORMATION
  Report Type: Spontaneous
  Country: US (occurrence: US)
  Receive Date: 20160824
  Receipt Date: 20160901
  Transmission Date: 20161109
  Serious: Yes (Death, Hospitalization, Disabling, Other)
  Sender: FDA-Public Use
  Company Number: US-009507513-1608USA012083

PATIENT
  Sex: Male
  Weight: 85.71 kg

DRUGS (2)
  1. JANUVIA [Suspect]
     Active Substance: SITAGLIPTIN PHOSPHATE
     Indication: TYPE 2 DIABETES MELLITUS
     Dosage: 50MG, QD
     Route: 048
     Dates: start: 20111118, end: 20121013
  2. JANUVIA [Suspect]
     Active Substance: SITAGLIPTIN PHOSPHATE
     Dosage: 100MG, QD
     Route: 048
     Dates: start: 20111118, end: 20121013

REACTIONS (25)
  - Adverse event [Unknown]
  - Anal incontinence [Unknown]
  - Pollakiuria [Unknown]
  - Rectal tenesmus [Unknown]
  - Haemorrhoids [Unknown]
  - Steroid therapy [Unknown]
  - Oedema peripheral [Unknown]
  - Hypertension [Unknown]
  - Pelvic pain [Unknown]
  - Metastases to liver [Unknown]
  - Pancreatitis chronic [Unknown]
  - Arthralgia [Unknown]
  - Pancreatic carcinoma metastatic [Fatal]
  - Polyp [Unknown]
  - Muscular weakness [Unknown]
  - Purpura senile [Unknown]
  - Cholelithiasis [Unknown]
  - Depressed mood [Unknown]
  - Nervousness [Unknown]
  - Metastases to bone [Unknown]
  - Malaise [Unknown]
  - Sleep apnoea syndrome [Unknown]
  - Emphysema [Unknown]
  - Benign prostatic hyperplasia [Unknown]
  - Osteoarthritis [Unknown]

NARRATIVE: CASE EVENT DATE: 201111
